FAERS Safety Report 25207860 (Version 1)
Quarter: 2025Q2

REPORT INFORMATION
  Report Type: Spontaneous
  Country: US (occurrence: None)
  Receive Date: 20250416
  Receipt Date: 20250416
  Transmission Date: 20250716
  Serious: Yes (Life-Threatening, Disabling, Other)
  Sender: FDA-CTU
  Company Number: None

PATIENT
  Age: 14 Year
  Sex: Male

DRUGS (1)
  1. ACCUTANE [Suspect]
     Active Substance: ISOTRETINOIN
     Indication: Acne
     Dosage: FREQUENCY : DAILY;?
     Route: 048
     Dates: start: 19980101, end: 19980730

REACTIONS (25)
  - Jaundice [None]
  - Alopecia [None]
  - Depression [None]
  - Persistent depressive disorder [None]
  - Chronic fatigue syndrome [None]
  - Blepharitis [None]
  - Postural orthostatic tachycardia syndrome [None]
  - Intracranial pressure increased [None]
  - Meibomian gland dysfunction [None]
  - Suicidal ideation [None]
  - Red blood cell count abnormal [None]
  - Anhedonia [None]
  - Sexual dysfunction [None]
  - Dysarthria [None]
  - Brain fog [None]
  - Alopecia [None]
  - Skin hypopigmentation [None]
  - Cognitive disorder [None]
  - Abnormal behaviour [None]
  - Bone pain [None]
  - Myalgia [None]
  - Cartilage atrophy [None]
  - Hypohidrosis [None]
  - Anxiety [None]
  - Coagulopathy [None]

NARRATIVE: CASE EVENT DATE: 19980101
